FAERS Safety Report 11655061 (Version 2)
Quarter: 2016Q1

REPORT INFORMATION
  Report Type: Spontaneous
  Country: AU (occurrence: AU)
  Receive Date: 20151023
  Receipt Date: 20160115
  Transmission Date: 20160525
  Serious: Yes (Death, Hospitalization, Other)
  Sender: FDA-Public Use
  Company Number: AU-PFIZER INC-2015352050

PATIENT
  Age: 64 Year
  Sex: Male
  Weight: 60 kg

DRUGS (8)
  1. PERINDOPRIL [Concomitant]
     Active Substance: PERINDOPRIL
     Dosage: 8 MG, 1X/DAY
     Route: 048
  2. PARACETAMOL/CODEINE [Concomitant]
     Active Substance: ACETAMINOPHEN\CODEINE PHOSPHATE
     Dosage: 1 DF, 4X/DAY ( 500MG/30MG)
     Route: 048
  3. QVAR [Concomitant]
     Active Substance: BECLOMETHASONE DIPROPIONATE
     Dosage: 100 UNK, 2X/DAY ( 100MCG 2 PUFFS TWICE A DAY)
     Route: 045
  4. METOPROLOL. [Concomitant]
     Active Substance: METOPROLOL
     Dosage: 100 MG, 2X/DAY
     Route: 048
  5. ANTENEX [Concomitant]
     Active Substance: DIAZEPAM
     Dosage: 5 MG, 1X/DAY ( AT NIGHT WHEN NEEDED)
     Route: 048
  6. CHAMPIX [Suspect]
     Active Substance: VARENICLINE TARTRATE
     Indication: SMOKING CESSATION THERAPY
     Dosage: 1 MG, 2X/DAY ( AFTER FOOD)
     Route: 048
     Dates: start: 20141118, end: 20141218
  7. LYRICA [Concomitant]
     Active Substance: PREGABALIN
     Dosage: 150 MG, 2X/DAY
     Route: 048
  8. MIANSERINE [Concomitant]
     Active Substance: MIANSERIN HYDROCHLORIDE
     Dosage: 10 MG, 1X/DAY ( AT NIGHT)
     Route: 048

REACTIONS (14)
  - Dyspnoea [Unknown]
  - Back disorder [Unknown]
  - Dehydration [Unknown]
  - Sunburn [Unknown]
  - Myocardial infarction [Fatal]
  - Cardiac disorder [Fatal]
  - Snoring [Unknown]
  - Asthma [Unknown]
  - Nausea [Unknown]
  - Cachexia [Unknown]
  - Muscular weakness [Unknown]
  - Hot flush [Unknown]
  - Decreased appetite [Unknown]
  - Asthenia [Unknown]
